FAERS Safety Report 7311719-7 (Version None)
Quarter: 2011Q1

REPORT INFORMATION
  Report Type: 
  Country: None (occurrence: None)
  Receive Date: 20110215
  Receipt Date: 20110215
  Transmission Date: 20110831
  Serious: Yes (Other)
  Sender: FDA-Public Use
  Company Number: None

PATIENT
  Age: 48 Year
  Sex: Female
  Weight: 112.4921 kg

DRUGS (3)
  1. LEXAPRO [Suspect]
     Indication: DEPRESSION
     Dosage: 20 MG IN MORNING
     Dates: start: 20110119, end: 20110125
  2. ABILIFY [Suspect]
     Indication: SLEEP DISORDER
     Dosage: 10 MG AT BEDTIME
     Dates: start: 20110120, end: 20110125
  3. ABILIFY [Suspect]
     Indication: DEPRESSION
     Dosage: 10 MG AT BEDTIME
     Dates: start: 20110120, end: 20110125

REACTIONS (6)
  - DIZZINESS [None]
  - DISORIENTATION [None]
  - COORDINATION ABNORMAL [None]
  - PALPITATIONS [None]
  - AGITATION [None]
  - RESTLESSNESS [None]
